FAERS Safety Report 6642215-8 (Version None)
Quarter: 2010Q1

REPORT INFORMATION
  Report Type: 
  Country: None (occurrence: None)
  Receive Date: 20100319
  Receipt Date: 20100315
  Transmission Date: 20100710
  Serious: Yes (Death, Hospitalization, Other)
  Sender: FDA-Public Use
  Company Number: US-ASTRAZENECA-2010SE11388

PATIENT
  Age: 27786 Day
  Sex: Male
  Weight: 78.5 kg

DRUGS (3)
  1. CRESTOR [Suspect]
     Indication: BLOOD CHOLESTEROL INCREASED
     Route: 048
     Dates: start: 20081001, end: 20090601
  2. CRESTOR [Suspect]
     Route: 048
     Dates: start: 20090701, end: 20090801
  3. LOVASTATIN [Suspect]
     Route: 065

REACTIONS (3)
  - PNEUMONIA [None]
  - RENAL FAILURE [None]
  - RHABDOMYOLYSIS [None]
